FAERS Safety Report 23871559 (Version 2)
Quarter: 2024Q2

REPORT INFORMATION
  Report Type: Report from Study
  Country: BE (occurrence: BE)
  Receive Date: 20240519
  Receipt Date: 20240530
  Transmission Date: 20240716
  Serious: Yes (Death)
  Sender: FDA-Public Use
  Company Number: BE-PFIZER INC-PV202400063581

PATIENT
  Age: 67 Year
  Sex: Male
  Weight: 67.3 kg

DRUGS (34)
  1. GEMTUZUMAB OZOGAMICIN [Suspect]
     Active Substance: GEMTUZUMAB OZOGAMICIN
     Indication: Acute myeloid leukaemia
     Dosage: 5 MG, ONCE
     Route: 042
     Dates: start: 20190820, end: 20190820
  2. GEMTUZUMAB OZOGAMICIN [Suspect]
     Active Substance: GEMTUZUMAB OZOGAMICIN
     Dosage: 5 MG, ONCE
     Route: 042
     Dates: start: 20190824, end: 20190824
  3. GEMTUZUMAB OZOGAMICIN [Suspect]
     Active Substance: GEMTUZUMAB OZOGAMICIN
     Dosage: 5 MG, ONCE
     Route: 042
     Dates: start: 20190827, end: 20190827
  4. GEMTUZUMAB OZOGAMICIN [Suspect]
     Active Substance: GEMTUZUMAB OZOGAMICIN
     Dosage: 5 MG, ONCE
     Route: 042
     Dates: start: 20191015, end: 20191015
  5. POTASSIUM CHLORIDE [Concomitant]
     Active Substance: POTASSIUM CHLORIDE
     Indication: Hypokalaemia
     Dosage: UNK
     Route: 042
     Dates: start: 20200103, end: 20200111
  6. MORPHINE [Concomitant]
     Active Substance: MORPHINE
     Indication: Pain
     Dosage: UNK
     Route: 042
     Dates: start: 20200103, end: 20200109
  7. ZANTAC [Concomitant]
     Active Substance: RANITIDINE HYDROCHLORIDE
     Indication: Prophylaxis
     Dosage: UNK
     Route: 042
     Dates: start: 20200103, end: 20200106
  8. ALIZAPRIDE HYDROCHLORIDE [Concomitant]
     Active Substance: ALIZAPRIDE HYDROCHLORIDE
     Indication: Nausea
     Dosage: UNK
     Route: 042
     Dates: start: 20200103, end: 20200107
  9. ALIZAPRIDE HYDROCHLORIDE [Concomitant]
     Active Substance: ALIZAPRIDE HYDROCHLORIDE
     Dosage: UNK
     Route: 048
     Dates: start: 20200107
  10. FOLIC ACID [Concomitant]
     Active Substance: FOLIC ACID
     Indication: Prophylaxis
     Dosage: UNK
     Route: 042
     Dates: start: 20200103, end: 20200103
  11. FOLIC ACID [Concomitant]
     Active Substance: FOLIC ACID
     Dosage: UNK
     Route: 048
     Dates: start: 20200104
  12. LASIX [Concomitant]
     Active Substance: FUROSEMIDE
     Indication: Hypervolaemia
     Dosage: UNK
     Route: 042
     Dates: start: 20200103, end: 20200103
  13. OMIC [Concomitant]
     Indication: Benign prostatic hyperplasia
     Dosage: UNK
     Route: 048
     Dates: start: 20200103
  14. MEROPENEM [Concomitant]
     Active Substance: MEROPENEM
     Indication: Infection
     Dosage: UNK
     Route: 042
     Dates: start: 20200103, end: 20200104
  15. DIFLUCAN [Concomitant]
     Active Substance: FLUCONAZOLE
     Indication: Fungal infection
     Dosage: UNK
     Route: 042
     Dates: start: 20200103
  16. CYCLOSPORINE [Concomitant]
     Active Substance: CYCLOSPORINE
     Indication: Prophylaxis
     Dosage: UNK
     Route: 042
     Dates: start: 20200103, end: 20200108
  17. TOULARYNX DEXTROMETHORPHAN [Concomitant]
     Indication: Cough
     Dosage: UNK
     Route: 048
     Dates: start: 20200103, end: 20200106
  18. MYCOPHENOLATE MOFETIL [Concomitant]
     Active Substance: MYCOPHENOLATE MOFETIL
     Indication: Prophylaxis
     Dosage: UNK
     Route: 042
     Dates: start: 20200103, end: 20200106
  19. ALDACTONE [Concomitant]
     Active Substance: SPIRONOLACTONE
     Indication: Hypervolaemia
     Dosage: UNK
     Route: 048
     Dates: start: 20200104
  20. NYSTATIN [Concomitant]
     Active Substance: NYSTATIN
     Indication: Skin irritation
     Dosage: NYSTATIE IN ZINKOXYDE PASTE
     Route: 061
     Dates: start: 20200105
  21. ACETAMINOPHEN [Concomitant]
     Active Substance: ACETAMINOPHEN
     Indication: Pain
     Dosage: UNK
     Route: 042
     Dates: start: 20200105, end: 20200112
  22. ACETAMINOPHEN [Concomitant]
     Active Substance: ACETAMINOPHEN
     Indication: Pyrexia
  23. CELLCEPT [Concomitant]
     Active Substance: MYCOPHENOLATE MOFETIL
     Indication: Prophylaxis
     Dosage: UNK
     Route: 048
     Dates: start: 20200106
  24. TROPICAMIDE [Concomitant]
     Active Substance: TROPICAMIDE
     Indication: Ophthalmological examination
     Dosage: TROPICAMIDE MONOFREE
     Route: 031
     Dates: start: 20200106, end: 20200106
  25. CYCLOSPORINE [Concomitant]
     Active Substance: CYCLOSPORINE
     Indication: Prophylaxis
     Dosage: UNK
     Route: 048
     Dates: start: 20200107
  26. DEXA RHINOSPRAY N [Concomitant]
     Indication: Rhinitis
     Dosage: UNK
     Route: 045
     Dates: start: 20200107, end: 20200112
  27. XYLOMETAZOLINE HYDROCHLORIDE [Concomitant]
     Active Substance: XYLOMETAZOLINE HYDROCHLORIDE
     Indication: Rhinitis
     Dosage: UNK
     Route: 045
     Dates: start: 20200107, end: 20200109
  28. TRAMADOL HYDROCHLORIDE [Concomitant]
     Active Substance: TRAMADOL HYDROCHLORIDE
     Indication: Pain
     Dosage: UNK
     Route: 042
     Dates: start: 20200107, end: 20200109
  29. IMODIUM [Concomitant]
     Active Substance: LOPERAMIDE HYDROCHLORIDE
     Indication: Diarrhoea
     Dosage: UNK
     Route: 048
     Dates: start: 20200109, end: 20200110
  30. ZYRTEC [Concomitant]
     Active Substance: CETIRIZINE HYDROCHLORIDE
     Indication: Symmetrical drug-related intertriginous and flexural exanthema
     Dosage: UNK
     Route: 048
     Dates: start: 20200111
  31. PANTOPRAZOLE SODIUM [Concomitant]
     Active Substance: PANTOPRAZOLE SODIUM
     Indication: Prophylaxis
     Dosage: UNK
     Route: 042
     Dates: start: 20200103, end: 20200103
  32. PANTOPRAZOLE SODIUM [Concomitant]
     Active Substance: PANTOPRAZOLE SODIUM
     Dosage: UNK
     Route: 048
     Dates: start: 20200104
  33. AMLODIPINE BESYLATE [Concomitant]
     Active Substance: AMLODIPINE BESYLATE
     Indication: Hypertension
     Dosage: UNK
     Route: 048
     Dates: start: 20200112, end: 20200112
  34. MOMETASONE FUROATE [Concomitant]
     Active Substance: MOMETASONE FUROATE
     Indication: Symmetrical drug-related intertriginous and flexural exanthema
     Dosage: ELOCOM LIPO 0.1% CREME (PROPYLENEGLYCOSTEARATE)
     Route: 061
     Dates: start: 20200108

REACTIONS (1)
  - Venoocclusive disease [Fatal]

NARRATIVE: CASE EVENT DATE: 20200117
